FAERS Safety Report 13088570 (Version 1)
Quarter: 2017Q1

REPORT INFORMATION
  Report Type: Spontaneous
  Country: TH (occurrence: TH)
  Receive Date: 20170105
  Receipt Date: 20170105
  Transmission Date: 20170428
  Serious: Yes (Death, Other)
  Sender: FDA-Public Use
  Company Number: PHHY2016TH163464

PATIENT

DRUGS (1)
  1. CERTICAN [Suspect]
     Active Substance: EVEROLIMUS
     Indication: RENAL TRANSPLANT
     Route: 065

REACTIONS (3)
  - Death [Fatal]
  - Pneumonitis [Unknown]
  - Lung infection [Unknown]

NARRATIVE: CASE EVENT DATE: 20161125
